FAERS Safety Report 21207444 (Version 4)
Quarter: 2023Q4

REPORT INFORMATION
  Report Type: Spontaneous
  Country: CA (occurrence: CA)
  Receive Date: 20220812
  Receipt Date: 20231128
  Transmission Date: 20240110
  Serious: Yes (Hospitalization)
  Sender: FDA-Public Use
  Company Number: CA-BAYER-2022A109815

PATIENT
  Age: 53 Year
  Sex: Female

DRUGS (26)
  1. ESTRADIOL HEMIHYDRATE [Suspect]
     Active Substance: ESTRADIOL HEMIHYDRATE
     Dosage: UNK, Q2MON
     Route: 062
     Dates: end: 200903
  2. PROGESTERONE [Suspect]
     Active Substance: PROGESTERONE
     Indication: Product used for unknown indication
     Dosage: 100 MG, QD
     Route: 048
     Dates: end: 200903
  3. LORAZEPAM [Suspect]
     Active Substance: LORAZEPAM
     Indication: Product used for unknown indication
     Dosage: 1 MG, QD
     Route: 048
     Dates: end: 200903
  4. BUDESONIDE\FORMOTEROL FUMARATE [Suspect]
     Active Substance: BUDESONIDE\FORMOTEROL FUMARATE
     Indication: Product used for unknown indication
     Dosage: 1 DF, BID
     Route: 048
  5. BUDESONIDE\FORMOTEROL FUMARATE [Suspect]
     Active Substance: BUDESONIDE\FORMOTEROL FUMARATE
     Indication: Product used for unknown indication
     Dosage: 2 MG
  6. VARENICLINE [Suspect]
     Active Substance: VARENICLINE
     Indication: Product used for unknown indication
     Dosage: 0.5 MG, QD
  7. VENLAFAXINE [Suspect]
     Active Substance: VENLAFAXINE HYDROCHLORIDE
     Indication: Product used for unknown indication
     Dosage: 150 MG, UNK
  8. PROBIOTICS NOS [Suspect]
     Active Substance: PROBIOTICS NOS
     Dosage: 1 DF, TID
     Route: 048
  9. LINOLEIC ACID, CONJUGATED [Suspect]
     Active Substance: LINOLEIC ACID, CONJUGATED
     Dosage: 1 DF, TID
     Route: 048
  10. SOMATROPIN [Suspect]
     Active Substance: SOMATROPIN
     Indication: Product used for unknown indication
     Dosage: UNK
     Route: 062
  11. DIMETHYL SULFONE [Suspect]
     Active Substance: DIMETHYL SULFONE
     Indication: Product used for unknown indication
     Dosage: 1000 MG, TID
  12. VITAMINS NOS [Suspect]
     Active Substance: VITAMINS
     Dosage: 1 DF, BID
     Route: 048
  13. FISH OIL [Suspect]
     Active Substance: FISH OIL
     Indication: Product used for unknown indication
     Dosage: 1 DF, BID
     Route: 048
  14. VITAMIN D NOS [Suspect]
     Active Substance: VITAMIN D NOS
     Dosage: 1000 IU, QD
     Route: 048
  15. ERGOCALCIFEROL [Suspect]
     Active Substance: ERGOCALCIFEROL
     Indication: Product used for unknown indication
     Dosage: 1000 IU, QD
     Route: 048
  16. PROMETRIUM [Suspect]
     Active Substance: PROGESTERONE
     Indication: Product used for unknown indication
     Route: 048
  17. ICOSAPENT [Suspect]
     Active Substance: ICOSAPENT
     Indication: Product used for unknown indication
     Dosage: 180 MG, BID
     Route: 048
  18. DOCONEXENT [Suspect]
     Active Substance: DOCONEXENT
     Indication: Product used for unknown indication
     Dosage: 120 MG, BID
     Route: 048
  19. UBIDECARENONE [Suspect]
     Active Substance: UBIDECARENONE
     Indication: Product used for unknown indication
     Route: 048
  20. .ALPHA.-TOCOPHEROL [Suspect]
     Active Substance: .ALPHA.-TOCOPHEROL
     Indication: Product used for unknown indication
     Route: 048
  21. VITAMIN C [Suspect]
     Active Substance: ASCORBIC ACID
     Indication: Product used for unknown indication
     Dosage: 15 MG, BID
     Route: 048
  22. RETINOL [Suspect]
     Active Substance: RETINOL
     Indication: Product used for unknown indication
     Route: 048
  23. THIOCTIC ACID [Suspect]
     Active Substance: THIOCTIC ACID
     Indication: Product used for unknown indication
     Dosage: 3.75 MG, QD
  24. .ALPHA.-TOCOPHEROL, D- [Suspect]
     Active Substance: .ALPHA.-TOCOPHEROL, D-
     Indication: Product used for unknown indication
     Dosage: 7.5 MG
     Route: 048
  25. BIFIDOBACTERIUM LONGUM [Suspect]
     Active Substance: BIFIDOBACTERIUM LONGUM
     Indication: Product used for unknown indication
     Route: 048
  26. RETINOL [Suspect]
     Active Substance: RETINOL
     Indication: Product used for unknown indication
     Dosage: 188 MG, BID

REACTIONS (6)
  - Drug-induced liver injury [Unknown]
  - Hepatic cirrhosis [Unknown]
  - Hepatic encephalopathy [Unknown]
  - Hepatic necrosis [Unknown]
  - Hepatotoxicity [Recovered/Resolved]
  - Drug interaction [Unknown]
